FAERS Safety Report 10256389 (Version 1)
Quarter: 2014Q2

REPORT INFORMATION
  Report Type: Spontaneous
  Country: US (occurrence: US)
  Receive Date: 20140624
  Receipt Date: 20140624
  Transmission Date: 20141212
  Serious: No
  Sender: FDA-Public Use
  Company Number: US-ZOGENIX, INC.-2012ZX000144

PATIENT
  Sex: Female
  Weight: 56.75 kg

DRUGS (2)
  1. SUMAVEL DOSEPRO [Suspect]
     Indication: MIGRAINE
     Dates: start: 2010
  2. SUMAVEL DOSEPRO [Suspect]
     Dates: start: 20120418

REACTIONS (1)
  - Pneumonia [Recovered/Resolved]
